FAERS Safety Report 10247818 (Version 3)
Quarter: 2014Q3

REPORT INFORMATION
  Report Type: Spontaneous
  Country: JP (occurrence: JP)
  Receive Date: 20140619
  Receipt Date: 20140728
  Transmission Date: 20150326
  Serious: Yes (Hospitalization)
  Sender: FDA-Public Use
  Company Number: JP-CELGENEUS-087-21880-14061764

PATIENT
  Age: 59 Year
  Sex: Female

DRUGS (10)
  1. REVLIMID [Suspect]
     Active Substance: LENALIDOMIDE
     Indication: PLASMA CELL MYELOMA
     Dosage: 10 MILLIGRAM
     Route: 048
     Dates: start: 20130821, end: 20140609
  2. EXCELASE [Concomitant]
     Indication: POSTOPERATIVE CARE
     Dosage: 3 DOSAGE FORMS
     Route: 048
     Dates: end: 20140609
  3. ZOVIRAX [Concomitant]
     Active Substance: ACYCLOVIR
     Indication: PROPHYLAXIS
     Dosage: 200 MILLIGRAM
     Route: 048
     Dates: start: 20130718, end: 20140609
  4. VELCADE [Concomitant]
     Active Substance: BORTEZOMIB
     Dates: start: 20130821, end: 20140609
  5. INSULIN [Concomitant]
     Active Substance: INSULIN NOS
     Indication: DIABETES MELLITUS
     Route: 065
  6. DIASTASE [Concomitant]
     Active Substance: DIASTASE
     Indication: POSTOPERATIVE CARE
     Dosage: 1.5 GRAM
     Route: 048
     Dates: end: 20140609
  7. URSO [Concomitant]
     Active Substance: URSODIOL
     Indication: PROPHYLAXIS
     Dosage: 300 MILLIGRAM
     Route: 048
     Dates: start: 20130718, end: 20140609
  8. BAKTAR [Concomitant]
     Active Substance: SULFAMETHOXAZOLE\TRIMETHOPRIM
     Indication: PROPHYLAXIS
     Dosage: 1 DOSAGE FORMS
     Route: 048
     Dates: start: 20130718, end: 20140609
  9. GASTER [Concomitant]
     Active Substance: FAMOTIDINE
     Indication: PROPHYLAXIS
     Dosage: 10 MILLIGRAM
     Route: 048
     Dates: end: 20140609
  10. VELCADE [Concomitant]
     Active Substance: BORTEZOMIB
     Indication: PLASMA CELL MYELOMA
     Route: 065
     Dates: start: 20130710, end: 20130729

REACTIONS (1)
  - Anastomotic ulcer [Recovered/Resolved]

NARRATIVE: CASE EVENT DATE: 20140526
